FAERS Safety Report 5487368-2 (Version None)
Quarter: 2007Q4

REPORT INFORMATION
  Report Type: 
  Country: None (occurrence: None)
  Receive Date: 20071016
  Receipt Date: 20071009
  Transmission Date: 20080405
  Serious: Yes (Hospitalization)
  Sender: FDA-Public Use
  Company Number: JP-BOEHRINGER INGELHEIM PHARMACEUTICALS, INC.-2007-BP-19389NB

PATIENT
  Sex: Female
  Weight: 36 kg

DRUGS (8)
  1. MICARDIS [Suspect]
     Indication: HYPERTENSION
     Route: 048
     Dates: start: 20060830, end: 20060909
  2. AMLODIPINE [Concomitant]
     Indication: HYPERTENSION
     Route: 048
  3. LIVALO [Concomitant]
     Route: 048
     Dates: end: 20060909
  4. DOXAZOSIN MESYLATE [Concomitant]
     Indication: HYPERTENSION
     Route: 048
     Dates: end: 20060909
  5. ITOROL [Concomitant]
     Route: 048
  6. METHYCOBAL (MECOBALAMIN) [Concomitant]
     Route: 048
  7. ROHYPNOL [Concomitant]
     Indication: INSOMNIA
     Route: 048
     Dates: end: 20060909
  8. TICLOPIDINE HCL [Concomitant]
     Route: 048
     Dates: start: 20020101, end: 20060909

REACTIONS (1)
  - CARDIAC FAILURE [None]
